FAERS Safety Report 18587160 (Version 1)
Quarter: 2020Q4

REPORT INFORMATION
  Report Type: Spontaneous
  Country: BG (occurrence: BG)
  Receive Date: 20201207
  Receipt Date: 20201207
  Transmission Date: 20210114
  Serious: Yes (Life-Threatening, Hospitalization, Disabling, Other)
  Sender: FDA-Public Use
  Company Number: BG-TEVA-2020-BG-1854728

PATIENT
  Age: 75 Year
  Sex: Female

DRUGS (3)
  1. VALTENSIN [Suspect]
     Active Substance: VALSARTAN
     Indication: HYPERTENSION
     Dosage: 320 MILLIGRAM DAILY; ONCE DAILY
     Route: 065
     Dates: start: 20170701, end: 20180901
  2. DIPPERAM 5 MG/160 MG [Suspect]
     Active Substance: AMLODIPINE BESYLATE\VALSARTAN
     Indication: HYPERTENSION
     Route: 065
     Dates: start: 20181001, end: 2019
  3. OLMESARTAN 10 MG [Suspect]
     Active Substance: OLMESARTAN
     Indication: HYPERTENSION
     Dosage: 10 MILLIGRAM DAILY; ONCE DAILY
     Route: 065
     Dates: start: 20150101, end: 20170101

REACTIONS (2)
  - Malignant melanoma [Recovering/Resolving]
  - Neoplasm malignant [Recovering/Resolving]
